FAERS Safety Report 19150001 (Version 3)
Quarter: 2021Q4

REPORT INFORMATION
  Report Type: Spontaneous
  Country: US (occurrence: US)
  Receive Date: 20210417
  Receipt Date: 20211110
  Transmission Date: 20220303
  Serious: No
  Sender: FDA-Public Use
  Company Number: US-LUPIN PHARMACEUTICALS INC.-2021-04669

PATIENT
  Age: 54 Year
  Sex: Female

DRUGS (2)
  1. ALBUTEROL SULFATE [Suspect]
     Active Substance: ALBUTEROL SULFATE
     Indication: Dyspnoea
     Dosage: 2 DOSAGE FORM, QID EVERY FOUR HOURS
     Route: 065
     Dates: start: 20210402
  2. OXYGEN [Concomitant]
     Active Substance: OXYGEN
     Indication: Product used for unknown indication
     Dosage: UNK
     Route: 065

REACTIONS (4)
  - Device failure [Unknown]
  - Device delivery system issue [Unknown]
  - Product dose omission issue [Unknown]
  - No adverse event [Unknown]

NARRATIVE: CASE EVENT DATE: 20210402
